FAERS Safety Report 15423734 (Version 2)
Quarter: 2019Q3

REPORT INFORMATION
  Report Type: Report from Study
  Country: US (occurrence: US)
  Receive Date: 20180925
  Receipt Date: 20190716
  Transmission Date: 20191004
  Serious: Yes (Hospitalization, Other)
  Sender: FDA-Public Use
  Company Number: US-009507513-1809USA007997

PATIENT
  Age: 74 Year

DRUGS (1)
  1. KEYTRUDA [Suspect]
     Active Substance: PEMBROLIZUMAB
     Dosage: UNK

REACTIONS (7)
  - Hypoxia [Not Recovered/Not Resolved]
  - Pneumonia [Unknown]
  - Pyrexia [Not Recovered/Not Resolved]
  - Presyncope [Unknown]
  - Dyspnoea [Unknown]
  - Pneumonitis [Recovering/Resolving]
  - Tachycardia [Unknown]
